FAERS Safety Report 8028191-4 (Version None)
Quarter: 2011Q4

REPORT INFORMATION
  Report Type: 
  Country: None (occurrence: None)
  Receive Date: 20111130
  Receipt Date: 20110629
  Transmission Date: 20120403
  Serious: Yes (Other)
  Sender: FDA-Public Use
  Company Number: US200910005420

PATIENT
  Sex: Male
  Weight: 88.4 kg

DRUGS (6)
  1. LANTUS [Concomitant]
  2. FUROSEMIDE [Concomitant]
  3. EXENATIDE UNK STRENGTH PEN, DISPOSABLE DEVICE (EXENATIDE PEN (UNKNOWN [Concomitant]
  4. FERROUS SULFATE TAB [Concomitant]
  5. BYETTA [Suspect]
     Dates: start: 20061027, end: 20070724
  6. LASIX /USA/ (FUROSEMIDE) [Concomitant]

REACTIONS (3)
  - WEIGHT DECREASED [None]
  - RENAL FAILURE CHRONIC [None]
  - ASTHENIA [None]
